FAERS Safety Report 11393011 (Version 3)
Quarter: 2015Q3

REPORT INFORMATION
  Report Type: Spontaneous
  Country: MX (occurrence: MX)
  Receive Date: 20150818
  Receipt Date: 20150909
  Transmission Date: 20151125
  Serious: Yes (Hospitalization, Other)
  Sender: FDA-Public Use
  Company Number: MX-ABBVIE-15P-107-1447359-00

PATIENT
  Age: 72 Year
  Sex: Male

DRUGS (2)
  1. CICLOFERON [Concomitant]
     Active Substance: BENZALKONIUM CHLORIDE\LIDOCAINE HYDROCHLORIDE
     Indication: HERPES VIRUS INFECTION
     Route: 061
     Dates: start: 201507
  2. KLARICID [Suspect]
     Active Substance: CLARITHROMYCIN
     Indication: PRODUCT USED FOR UNKNOWN INDICATION
     Dosage: 12H
     Route: 048
     Dates: start: 201507, end: 201507

REACTIONS (3)
  - Anaphylactic reaction [Not Recovered/Not Resolved]
  - Necrosis [Recovering/Resolving]
  - Purpura [Not Recovered/Not Resolved]

NARRATIVE: CASE EVENT DATE: 201507
